APPROVED DRUG PRODUCT: CEFOBID
Active Ingredient: CEFOPERAZONE SODIUM
Strength: EQ 2GM BASE/VIAL
Dosage Form/Route: INJECTABLE;INJECTION
Application: N050551 | Product #002
Applicant: PFIZER LABORATORIES DIV PFIZER INC
Approved: Nov 18, 1982 | RLD: No | RS: No | Type: DISCN